APPROVED DRUG PRODUCT: AMPHETAMINE SULFATE
Active Ingredient: AMPHETAMINE SULFATE
Strength: 10MG
Dosage Form/Route: TABLET;ORAL
Application: A212186 | Product #002
Applicant: GLENMARK PHARMACEUTICALS LTD
Approved: Jan 27, 2021 | RLD: No | RS: No | Type: DISCN